FAERS Safety Report 15112820 (Version 4)
Quarter: 2018Q3

REPORT INFORMATION
  Report Type: Report from Study
  Country: IT (occurrence: IT)
  Receive Date: 20180705
  Receipt Date: 20180820
  Transmission Date: 20181010
  Serious: Yes (Death)
  Sender: FDA-Public Use
  Company Number: IT-TEVA-2018-IT-919420

PATIENT
  Age: 63 Year
  Sex: Female

DRUGS (3)
  1. METFORMIN [Suspect]
     Active Substance: METFORMIN HYDROCHLORIDE
     Indication: DIABETES MELLITUS
     Dosage: 2500 MILLIGRAM DAILY;
     Route: 065
  2. CALCIUM CARBONATE. [Concomitant]
     Active Substance: CALCIUM CARBONATE
     Dosage: 1 VIAL
     Route: 065
  3. ADRENALINE [Concomitant]
     Active Substance: EPINEPHRINE
     Route: 065

REACTIONS (2)
  - Lactic acidosis [Fatal]
  - Bradycardia [Fatal]

NARRATIVE: CASE EVENT DATE: 20180430
